FAERS Safety Report 12690197 (Version 9)
Quarter: 2018Q4

REPORT INFORMATION
  Report Type: Report from Study
  Country: US (occurrence: US)
  Receive Date: 20160826
  Receipt Date: 20181115
  Transmission Date: 20190204
  Serious: Yes (Hospitalization)
  Sender: FDA-Public Use
  Company Number: US-ACTELION-A-NJ2016-140962

PATIENT
  Age: 70 Year
  Sex: Female

DRUGS (16)
  1. UPTRAVI [Suspect]
     Active Substance: SELEXIPAG
     Dosage: 400 MCG, BID
     Route: 048
     Dates: start: 20160613
  2. SINGULAIR [Concomitant]
     Active Substance: MONTELUKAST SODIUM
  3. UPTRAVI [Suspect]
     Active Substance: SELEXIPAG
     Indication: PULMONARY ARTERIAL HYPERTENSION
     Dosage: 1200 MCG, BID
     Route: 048
  4. LAMICTAL [Concomitant]
     Active Substance: LAMOTRIGINE
  5. WARFARIN [Concomitant]
     Active Substance: WARFARIN
  6. BUMETANIDE. [Concomitant]
     Active Substance: BUMETANIDE
  7. UPTRAVI [Suspect]
     Active Substance: SELEXIPAG
     Dosage: 1400 MCG, BID
     Route: 048
  8. UPTRAVI [Suspect]
     Active Substance: SELEXIPAG
     Dosage: 800 UNK, UNK
     Route: 048
     Dates: start: 20160613
  9. DHEA [Concomitant]
     Active Substance: PRASTERONE
  10. ARMOUR THYROID [Concomitant]
     Active Substance: THYROID, PORCINE
  11. TRILEPTAL [Concomitant]
     Active Substance: OXCARBAZEPINE
  12. PANTOPRAZOLE [Concomitant]
     Active Substance: PANTOPRAZOLE
  13. MIRAPEX [Concomitant]
     Active Substance: PRAMIPEXOLE DIHYDROCHLORIDE
  14. PRAVASTATIN. [Concomitant]
     Active Substance: PRAVASTATIN
  15. ADEMPAS [Concomitant]
     Active Substance: RIOCIGUAT
  16. ACARBOSE. [Concomitant]
     Active Substance: ACARBOSE

REACTIONS (22)
  - Dyspnoea [Unknown]
  - Cardiac failure congestive [Unknown]
  - Transfusion [Unknown]
  - Balance disorder [Unknown]
  - Nausea [Unknown]
  - Polyp [Recovering/Resolving]
  - Skin ulcer [Unknown]
  - Fall [Unknown]
  - Concussion [Unknown]
  - Intentional product misuse [Unknown]
  - Somnolence [Unknown]
  - Headache [Unknown]
  - Gait disturbance [Unknown]
  - Oxygen saturation decreased [Unknown]
  - Depression [Unknown]
  - Colonoscopy [Unknown]
  - Coronary artery occlusion [Unknown]
  - Pain [Unknown]
  - Incorrect dose administered [Unknown]
  - Anaemia [Recovering/Resolving]
  - Syncope [Unknown]
  - Intestinal ulcer [Recovering/Resolving]

NARRATIVE: CASE EVENT DATE: 20160629
